FAERS Safety Report 9019135 (Version 1)
Quarter: 2013Q1

REPORT INFORMATION
  Report Type: Report from Study
  Country: US (occurrence: US)
  Receive Date: 20130118
  Receipt Date: 20130118
  Transmission Date: 20140127
  Serious: Yes (Hospitalization, Other)
  Sender: FDA-Public Use
  Company Number: US-ABBOTT-13P-163-1035589-00

PATIENT
  Age: 74 Year
  Sex: Male

DRUGS (8)
  1. HUMIRA [Suspect]
     Indication: RHEUMATOID ARTHRITIS
     Dates: end: 2010
  2. HUMIRA [Suspect]
  3. HUMIRA [Suspect]
  4. VITAMIN D3 [Concomitant]
     Indication: VITAMIN SUPPLEMENTATION
  5. ALEVE [Concomitant]
     Indication: ARTHRALGIA
  6. TEMAZEPAM [Concomitant]
     Indication: INSOMNIA
  7. METHOTREXATE [Concomitant]
     Indication: RHEUMATOID ARTHRITIS
  8. METHOTREXATE [Concomitant]

REACTIONS (5)
  - Nephrolithiasis [Unknown]
  - Osteomyelitis [Recovered/Resolved]
  - Pain in extremity [Unknown]
  - Pyrexia [Unknown]
  - Ureteric obstruction [Not Recovered/Not Resolved]
